FAERS Safety Report 6754262-6 (Version None)
Quarter: 2010Q2

REPORT INFORMATION
  Report Type: 
  Country: None (occurrence: None)
  Receive Date: 20100603
  Receipt Date: 20100521
  Transmission Date: 20101027
  Serious: Yes (Other)
  Sender: FDA-Public Use
  Company Number: US-MERCK-1005USA04046

PATIENT
  Age: 26 Year
  Sex: Male

DRUGS (1)
  1. SINGULAIR [Suspect]
     Indication: POSTNASAL DRIP
     Route: 048
     Dates: start: 20070601, end: 20070601

REACTIONS (18)
  - ABNORMAL DREAMS [None]
  - ANXIETY [None]
  - APHONIA [None]
  - COMMUNICATION DISORDER [None]
  - DEPRESSION [None]
  - DIZZINESS [None]
  - DYSARTHRIA [None]
  - FATIGUE [None]
  - FEELING ABNORMAL [None]
  - GLOSSODYNIA [None]
  - INSOMNIA [None]
  - MORBID THOUGHTS [None]
  - MUSCLE TIGHTNESS [None]
  - OROPHARYNGEAL PAIN [None]
  - POLYGLANDULAR DISORDER [None]
  - SENSATION OF HEAVINESS [None]
  - SOCIAL AVOIDANT BEHAVIOUR [None]
  - SPEECH DISORDER [None]
